FAERS Safety Report 20190447 (Version 1)
Quarter: 2021Q4

REPORT INFORMATION
  Report Type: Spontaneous
  Country: PE (occurrence: PE)
  Receive Date: 20211215
  Receipt Date: 20211215
  Transmission Date: 20220303
  Serious: No
  Sender: FDA-Public Use
  Company Number: PE-ALKEM LABORATORIES LIMITED-PE-ALKEM-2021-06517

PATIENT
  Age: 36 Year
  Sex: Female

DRUGS (1)
  1. METOPROLOL SUCCINATE [Suspect]
     Active Substance: METOPROLOL SUCCINATE
     Indication: Arrhythmia
     Dosage: 100 MILLIGRAM, OD
     Route: 065

REACTIONS (1)
  - Exposure during pregnancy [Unknown]
